FAERS Safety Report 22269990 (Version 1)
Quarter: 2023Q2

REPORT INFORMATION
  Report Type: Spontaneous
  Country: ES (occurrence: ES)
  Receive Date: 20230501
  Receipt Date: 20230501
  Transmission Date: 20230721
  Serious: Yes (Other)
  Sender: FDA-Public Use
  Company Number: ES-ANIPHARMA-2023-ES-000055

PATIENT
  Age: 35 Year
  Sex: Female

DRUGS (2)
  1. CASODEX [Suspect]
     Active Substance: BICALUTAMIDE
     Indication: Androgenetic alopecia
     Dosage: 5 DAYS A WEEK AND 2 DAYS OF REST
     Route: 048
  2. LORMETAZEPAM [Suspect]
     Active Substance: LORMETAZEPAM
     Dosage: 2 MG/DL HS
     Route: 065

REACTIONS (3)
  - Formication [Unknown]
  - Off label use [Unknown]
  - Product use in unapproved indication [Unknown]
